FAERS Safety Report 8927831 (Version 2)
Quarter: 2013Q1

REPORT INFORMATION
  Report Type: Report from Study
  Country: JP (occurrence: JP)
  Receive Date: 20121127
  Receipt Date: 20130130
  Transmission Date: 20140127
  Serious: Yes (Other)
  Sender: FDA-Public Use
  Company Number: JP-VERTEX PHARMACEUTICAL INC.-AE-2012-008714

PATIENT
  Age: 54 Year
  Sex: Male

DRUGS (7)
  1. VX-950 (TELAPREVIR) [Suspect]
     Indication: CHRONIC HEPATITIS C
     Dosage: 2250 MG, QD
     Route: 048
     Dates: start: 20120404, end: 20120626
  2. REBETOL [Suspect]
     Indication: CHRONIC HEPATITIS C
     Dosage: 800 MG, QD
     Route: 048
     Dates: start: 20120404, end: 20120424
  3. REBETOL [Suspect]
     Dosage: 600 MG, QD
     Route: 048
     Dates: start: 20120425, end: 20120508
  4. REBETOL [Suspect]
     Dosage: 400 MG, QD
     Route: 048
     Dates: start: 20120509
  5. PEGINTERFERON ALFA-2B [Suspect]
     Indication: CHRONIC HEPATITIS C
     Dosage: 1.5 ?G/KG, QW
     Route: 058
     Dates: start: 20120404
  6. BETAMETHASONE VALERATE\GENTAMICIN SULFATE [Suspect]
     Indication: ADVERSE EVENT
     Dosage: 5 G, PRN
     Route: 061
     Dates: start: 20120409
  7. ALESION [Suspect]
     Indication: ADVERSE EVENT
     Dosage: 20 MG, QD
     Route: 048
     Dates: start: 20120409

REACTIONS (5)
  - White blood cell count decreased [Recovered/Resolved]
  - Drug eruption [None]
  - Platelet count decreased [None]
  - Abdominal pain upper [None]
  - Anaemia [None]
